FAERS Safety Report 15399755 (Version 2)
Quarter: 2018Q4

REPORT INFORMATION
  Report Type: Spontaneous
  Country: JP (occurrence: JP)
  Receive Date: 20180918
  Receipt Date: 20181217
  Transmission Date: 20190204
  Serious: Yes (Hospitalization)
  Sender: FDA-Public Use
  Company Number: JP-009507513-1809JPN000973J

PATIENT
  Age: 66 Year
  Sex: Female
  Weight: 39 kg

DRUGS (1)
  1. KEYTRUDA [Suspect]
     Active Substance: PEMBROLIZUMAB
     Indication: NON-SMALL CELL LUNG CANCER STAGE IIIA
     Dosage: 200 MG, UNK
     Route: 041
     Dates: start: 201803, end: 20180816

REACTIONS (3)
  - Blood corticotrophin decreased [Recovering/Resolving]
  - Cortisol decreased [Unknown]
  - Malaise [Unknown]

NARRATIVE: CASE EVENT DATE: 201808
